FAERS Safety Report 12083129 (Version 5)
Quarter: 2020Q1

REPORT INFORMATION
  Report Type: Other
  Country: US (occurrence: US)
  Receive Date: 20160217
  Receipt Date: 20200126
  Transmission Date: 20200409
  Serious: Yes (Other)
  Sender: FDA-Public Use
  Company Number: US-ACORDA-ACO_121293_2016

PATIENT
  Age: 63 Year
  Sex: Female

DRUGS (4)
  1. AMPYRA [Suspect]
     Active Substance: DALFAMPRIDINE
     Indication: GAIT DISTURBANCE
     Dosage: 10 MG, BID
     Route: 048
     Dates: end: 201902
  2. AMPYRA [Suspect]
     Active Substance: DALFAMPRIDINE
     Indication: MULTIPLE SCLEROSIS
     Dosage: 10 MG, BID
     Route: 048
     Dates: start: 201501
  3. PLEGRIDY [Suspect]
     Active Substance: PEGINTERFERON BETA-1A
     Indication: MULTIPLE SCLEROSIS
     Dosage: 125 MCG, Q 2 WKS
     Route: 058
     Dates: start: 20141212, end: 20150107
  4. AVONEX [Concomitant]
     Active Substance: INTERFERON BETA-1A
     Indication: MULTIPLE SCLEROSIS
     Dosage: 30 MCG, WEEKLY
     Route: 030
     Dates: start: 20040701, end: 20141223

REACTIONS (12)
  - Congenital nystagmus [Recovering/Resolving]
  - Gait disturbance [Not Recovered/Not Resolved]
  - Therapy cessation [Not Recovered/Not Resolved]
  - Fall [Not Recovered/Not Resolved]
  - Dysarthria [Not Recovered/Not Resolved]
  - Visual impairment [Recovering/Resolving]
  - Mobility decreased [Not Recovered/Not Resolved]
  - Therapy cessation [Recovered/Resolved]
  - Brain injury [Not Recovered/Not Resolved]
  - Condition aggravated [Not Recovered/Not Resolved]
  - Musculoskeletal stiffness [Not Recovered/Not Resolved]
  - Slow speech [Not Recovered/Not Resolved]

NARRATIVE: CASE EVENT DATE: 201501
